FAERS Safety Report 8876268 (Version 1)
Quarter: 2012Q4

REPORT INFORMATION
  Report Type: 
  Country: FI (occurrence: FI)
  Receive Date: 20121023
  Receipt Date: 20121023
  Transmission Date: 20130627
  Serious: Yes (Other)
  Sender: FDA-Public Use
  Company Number: FI-009507513-1210FIN009657

PATIENT
  Age: 66 Year
  Sex: Male

DRUGS (2)
  1. EMEND [Suspect]
     Route: 048
  2. IFOSFAMIDE [Concomitant]

REACTIONS (1)
  - Encephalopathy [Unknown]
